FAERS Safety Report 11880463 (Version 1)
Quarter: 2015Q4

REPORT INFORMATION
  Report Type: Spontaneous
  Country: JP (occurrence: JP)
  Receive Date: 20151230
  Receipt Date: 20151230
  Transmission Date: 20160305
  Serious: Yes (Death)
  Sender: FDA-Public Use
  Company Number: JP-009507513-1512JPN013111

PATIENT
  Sex: Male
  Weight: 80 kg

DRUGS (3)
  1. CANCIDAS [Suspect]
     Active Substance: CASPOFUNGIN ACETATE
     Indication: CANDIDA PNEUMONIA
     Dosage: 50 MG, QD
     Route: 041
     Dates: start: 20150309, end: 20150310
  2. PREDONINE [Concomitant]
     Active Substance: PREDNISOLONE\PREDNISOLONE ACETATE\PREDNISOLONE SODIUM SUCCINATE
     Indication: LUNG DISORDER
     Dosage: 80 MG, QD
     Route: 051
     Dates: start: 20150309, end: 20150310
  3. CRAVIT [Concomitant]
     Active Substance: LEVOFLOXACIN
     Indication: PNEUMONIA
     Dosage: 500 MG, QD
     Route: 051
     Dates: start: 20150309, end: 20150310

REACTIONS (1)
  - Lung disorder [Fatal]
